FAERS Safety Report 5122029-0 (Version None)
Quarter: 2006Q4

REPORT INFORMATION
  Report Type: 
  Country: None (occurrence: None)
  Receive Date: 20061006
  Receipt Date: 20060922
  Transmission Date: 20070319
  Serious: Yes (Hospitalization, Other)
  Sender: FDA-Public Use
  Company Number: US-JNJFOC-20060105216

PATIENT
  Sex: Female
  Weight: 60.7 kg

DRUGS (1)
  1. ORTHO EVRA [Suspect]
     Indication: CONTRACEPTION
     Route: 062

REACTIONS (11)
  - ACCIDENT [None]
  - DRUG TOXICITY [None]
  - GAIT DISTURBANCE [None]
  - HAEMATOMA [None]
  - INTERNATIONAL NORMALISED RATIO INCREASED [None]
  - MUSCLE STRAIN [None]
  - PAIN IN EXTREMITY [None]
  - PELVIC INFLAMMATORY DISEASE [None]
  - PULMONARY EMBOLISM [None]
  - SLEEP DISORDER [None]
  - WHITE BLOOD CELL COUNT INCREASED [None]
